FAERS Safety Report 7896889-4 (Version None)
Quarter: 2011Q4

REPORT INFORMATION
  Report Type: 
  Country: None (occurrence: None)
  Receive Date: 20111104
  Receipt Date: 20111104
  Transmission Date: 20120403
  Serious: Yes (Hospitalization)
  Sender: FDA-Public Use
  Company Number: None

PATIENT
  Sex: Male
  Weight: 28.123 kg

DRUGS (1)
  1. SULFAMETHOXAZOLE AND TRIMETHOPRIM [Suspect]
     Indication: STAPHYLOCOCCAL INFECTION
     Dosage: 1 TEASPOON X A DAY
     Dates: start: 20110708

REACTIONS (7)
  - ECONOMIC PROBLEM [None]
  - PRURITUS GENERALISED [None]
  - BODY TEMPERATURE INCREASED [None]
  - LIVER INJURY [None]
  - VIRAL INFECTION [None]
  - RASH GENERALISED [None]
  - RASH [None]
